FAERS Safety Report 18711395 (Version 1)
Quarter: 2021Q1

REPORT INFORMATION
  Report Type: Not Available
  Country: None (occurrence: None)
  Receive Date: 20210107
  Receipt Date: 20210107
  Transmission Date: 20210419
  Serious: No
  Sender: FDA-Public Use
  Company Number: US-AKORN PHARMACEUTICALS-2020AKN01426

PATIENT
  Age: 19 Year
  Sex: Female
  Weight: 76 kg

DRUGS (1)
  1. MYORISAN [Suspect]
     Active Substance: ISOTRETINOIN

REACTIONS (6)
  - Epistaxis [Recovered/Resolved]
  - Dry skin [Recovered/Resolved]
  - Xerosis [Unknown]
  - Lip dry [Recovered/Resolved]
  - Hyperlipidaemia [Unknown]
  - Cheilitis [Unknown]
